FAERS Safety Report 14012430 (Version 2)
Quarter: 2017Q4

REPORT INFORMATION
  Report Type: Spontaneous
  Country: US (occurrence: US)
  Receive Date: 20170926
  Receipt Date: 20171128
  Transmission Date: 20180321
  Serious: No
  Sender: FDA-Public Use
  Company Number: US-009507513-1709USA009752

PATIENT
  Sex: Female
  Weight: 66.21 kg

DRUGS (3)
  1. NUVARING [Suspect]
     Active Substance: ETHINYL ESTRADIOL\ETONOGESTREL
     Indication: CONTRACEPTION
     Dosage: 1 UNIT, UNK
     Route: 067
  2. NUVARING [Suspect]
     Active Substance: ETHINYL ESTRADIOL\ETONOGESTREL
     Indication: DYSMENORRHOEA
     Dosage: 1 UNIT, UNK
     Route: 067
  3. NUVARING [Suspect]
     Active Substance: ETHINYL ESTRADIOL\ETONOGESTREL
     Dosage: RING, UNK
     Route: 067
     Dates: start: 20170926

REACTIONS (4)
  - Product quality issue [Unknown]
  - Device expulsion [Unknown]
  - Product use in unapproved indication [Unknown]
  - Vaginal haemorrhage [Unknown]
